FAERS Safety Report 4525353-5 (Version None)
Quarter: 2004Q4

REPORT INFORMATION
  Report Type: 
  Country: None (occurrence: None)
  Receive Date: 20041213
  Receipt Date: 20041207
  Transmission Date: 20050328
  Serious: Yes (Hospitalization)
  Sender: FDA-Public Use
  Company Number: US-BRISTOL-MYERS SQUIBB COMPANY-12786786

PATIENT
  Age: 55 Year
  Sex: Female
  Weight: 56 kg

DRUGS (1)
  1. EXCEDRIN (MIGRAINE) [Suspect]
     Indication: OSTEOARTHRITIS
     Dosage: DOSAGE: DAILY; ^SOMETIMES UP TO 8 PILLS A DAY^
     Route: 048

REACTIONS (3)
  - CHOLELITHIASIS [None]
  - GASTRIC ULCER HAEMORRHAGE [None]
  - MEDICATION ERROR [None]
